FAERS Safety Report 12081339 (Version 2)
Quarter: 2016Q1

REPORT INFORMATION
  Report Type: Spontaneous
  Country: US (occurrence: US)
  Receive Date: 20160216
  Receipt Date: 20160229
  Transmission Date: 20160526
  Serious: Yes (Death, Hospitalization)
  Sender: FDA-Public Use
  Company Number: US-JNJFOC-20160211627

PATIENT
  Sex: Male

DRUGS (3)
  1. XARELTO [Suspect]
     Active Substance: RIVAROXABAN
     Indication: CEREBROVASCULAR ACCIDENT PROPHYLAXIS
     Route: 048
  2. XARELTO [Suspect]
     Active Substance: RIVAROXABAN
     Indication: ATRIAL FIBRILLATION
     Route: 048
  3. ELIQUIS [Suspect]
     Active Substance: APIXABAN
     Indication: ATRIAL FIBRILLATION
     Route: 065

REACTIONS (6)
  - Myocardial haemorrhage [Recovered/Resolved]
  - Shock [Not Recovered/Not Resolved]
  - Endocarditis [Recovered/Resolved]
  - Hepatitis acute [Not Recovered/Not Resolved]
  - Pleural effusion [Recovered/Resolved]
  - Death [Fatal]

NARRATIVE: CASE EVENT DATE: 2015
